FAERS Safety Report 6053866-6 (Version None)
Quarter: 2009Q1

REPORT INFORMATION
  Report Type: 
  Country: None (occurrence: None)
  Receive Date: 20090122
  Receipt Date: 20090112
  Transmission Date: 20090719
  Serious: Yes (Other)
  Sender: FDA-Public Use
  Company Number: 2009AP000091

PATIENT
  Age: 41 Year
  Sex: Female

DRUGS (4)
  1. CITALOPRAM HYDROBROMIDE [Suspect]
     Indication: DEPRESSION
     Dosage: 10 MG; QD
  2. ACETAMINOPHEN [Concomitant]
  3. ANTIINFLAMMATORY/ANTIRHEUMATIC NON-STEROIDS (ANTIINFLAMMATORY/ANTIRHEU [Concomitant]
  4. ANTIBIOTICS (ANTIBIOTICS) [Concomitant]

REACTIONS (6)
  - FACE OEDEMA [None]
  - FOOD INTERACTION [None]
  - HYPERSENSITIVITY [None]
  - OEDEMA MOUTH [None]
  - OEDEMA PERIPHERAL [None]
  - URTICARIA [None]
